FAERS Safety Report 21567014 (Version 1)
Quarter: 2022Q4

REPORT INFORMATION
  Report Type: Spontaneous
  Country: US (occurrence: None)
  Receive Date: 20221107
  Receipt Date: 20221107
  Transmission Date: 20230113
  Serious: Yes (Death)
  Sender: FDA-Public Use
  Company Number: None

PATIENT
  Sex: Female

DRUGS (13)
  1. REPATHA [Suspect]
     Active Substance: EVOLOCUMAB
     Indication: Product used for unknown indication
     Dosage: 3.5 ML ONCE MONTYLY SUBCUTANEOUS?
     Route: 058
     Dates: start: 20220816
  2. ENTRESTO [Concomitant]
     Active Substance: SACUBITRIL\VALSARTAN
  3. MODAFINIL [Concomitant]
     Active Substance: MODAFINIL
  4. BUMETANIDE [Concomitant]
     Active Substance: BUMETANIDE
  5. SPIRONOLACTONE [Concomitant]
     Active Substance: SPIRONOLACTONE
  6. COLCHICINE [Concomitant]
     Active Substance: COLCHICINE
  7. VITAMINS [Concomitant]
     Active Substance: VITAMINS
  8. glucos/chond [Concomitant]
  9. RANEXA [Concomitant]
     Active Substance: RANOLAZINE
  10. ALLOPURINOL [Concomitant]
     Active Substance: ALLOPURINOL
  11. ASPIRIN [Concomitant]
     Active Substance: ASPIRIN
  12. PRAMIPEXOLE [Concomitant]
     Active Substance: PRAMIPEXOLE
  13. PROPAFENONE [Concomitant]
     Active Substance: PROPAFENONE

REACTIONS (1)
  - Death [None]
